FAERS Safety Report 17121748 (Version 2)
Quarter: 2019Q4

REPORT INFORMATION
  Report Type: Report from Study
  Country: IN (occurrence: IN)
  Receive Date: 20191206
  Receipt Date: 20191210
  Transmission Date: 20200122
  Serious: Yes (Other)
  Sender: FDA-Public Use
  Company Number: NVSC2019IN059067

PATIENT
  Sex: Male

DRUGS (3)
  1. TASIGNA [Suspect]
     Active Substance: NILOTINIB
     Indication: CHRONIC MYELOID LEUKAEMIA
     Dosage: 400MG OD AND 200MG OD ALTERNATE DAYS
     Route: 065
     Dates: start: 20170922
  2. TASIGNA [Suspect]
     Active Substance: NILOTINIB
     Dosage: 400MG OD AND 200MG OD (ALTERNATE DAYS)
     Route: 065
     Dates: start: 20190928
  3. TASIGNA [Suspect]
     Active Substance: NILOTINIB
     Dosage: 300 MG, BID
     Route: 048
     Dates: start: 20191127

REACTIONS (3)
  - Thrombocytopenia [Unknown]
  - White blood cell count increased [Unknown]
  - Inappropriate schedule of product administration [Unknown]

NARRATIVE: CASE EVENT DATE: 20170922
